FAERS Safety Report 13194893 (Version 1)
Quarter: 2017Q1

REPORT INFORMATION
  Report Type: Spontaneous
  Country: IT (occurrence: IT)
  Receive Date: 20170207
  Receipt Date: 20170207
  Transmission Date: 20170428
  Serious: Yes (Other)
  Sender: FDA-Public Use
  Company Number: IT-IMPAX LABORATORIES, INC-2017-IPXL-00196

PATIENT
  Age: 34 Year
  Sex: Male

DRUGS (3)
  1. LAMOTRIGINE ODT [Suspect]
     Active Substance: LAMOTRIGINE
     Dosage: UPTO 300 MG/DAY
  2. LAMOTRIGINE ODT [Suspect]
     Active Substance: LAMOTRIGINE
     Indication: EPILEPSY
     Dosage: UP TO 400 MG/DAY
  3. DIVALPROEX SODIUM ER [Suspect]
     Active Substance: DIVALPROEX SODIUM
     Indication: EPILEPSY
     Dosage: UP TO 1000 MG/DAY
     Route: 065

REACTIONS (5)
  - Myoclonus [Not Recovered/Not Resolved]
  - Weight decreased [Unknown]
  - Condition aggravated [Unknown]
  - Drug level increased [Unknown]
  - Colitis ulcerative [Unknown]
